FAERS Safety Report 8066942-3 (Version None)
Quarter: 2012Q1

REPORT INFORMATION
  Report Type: 
  Country: None (occurrence: None)
  Receive Date: 20120124
  Receipt Date: 20120119
  Transmission Date: 20120608
  Serious: Yes (Life-Threatening)
  Sender: FDA-Public Use
  Company Number: US-BAYER-2011-093697

PATIENT
  Age: 42 Year
  Sex: Female

DRUGS (5)
  1. ZOLOFT [Concomitant]
     Dosage: 25 MG, QD
  2. YAZ [Suspect]
  3. YASMIN [Suspect]
  4. DROSPIRENONE AND ETHINYL ESTRADIOL [Suspect]
  5. PHENTERMINE [Concomitant]
     Dosage: UNK UNK, QD

REACTIONS (6)
  - ANHEDONIA [None]
  - PULMONARY EMBOLISM [None]
  - GENERAL PHYSICAL HEALTH DETERIORATION [None]
  - INJURY [None]
  - ANXIETY [None]
  - PAIN [None]
